FAERS Safety Report 4673626-8 (Version None)
Quarter: 2005Q2

REPORT INFORMATION
  Report Type: 
  Country: None (occurrence: None)
  Receive Date: 20050525
  Receipt Date: 20050308
  Transmission Date: 20051028
  Serious: Yes (Other)
  Sender: FDA-Public Use
  Company Number: 2005AP01641

PATIENT
  Age: 63 Year
  Sex: Male

DRUGS (6)
  1. PROPOFOL [Suspect]
     Indication: COR PULMONALE
     Route: 042
     Dates: start: 19950321, end: 19950322
  2. ADRENALINE [Suspect]
     Route: 042
     Dates: start: 19950321, end: 19950322
  3. SALBUTAMOL [Suspect]
     Indication: ASTHMA
     Route: 042
     Dates: start: 19950321, end: 19950322
  4. SALBUTAMOL [Concomitant]
     Indication: RESPIRATORY DISORDER
     Dosage: LONG TERM USE
     Route: 055
  5. ATROVENT [Concomitant]
     Indication: RESPIRATORY DISORDER
     Route: 055
     Dates: start: 19950321
  6. RANITIDINE [Concomitant]
     Indication: PROPHYLAXIS
     Route: 042
     Dates: start: 19950321

REACTIONS (1)
  - LACTIC ACIDOSIS [None]
